FAERS Safety Report 20903651 (Version 1)
Quarter: 2022Q2

REPORT INFORMATION
  Report Type: Spontaneous
  Country: CN (occurrence: None)
  Receive Date: 20220602
  Receipt Date: 20220602
  Transmission Date: 20220721
  Serious: Yes (Other)
  Sender: FDA-Public Use
  Company Number: 2022A200476

PATIENT
  Age: 19060 Day
  Sex: Male
  Weight: 75 kg

DRUGS (4)
  1. DAPAGLIFLOZIN [Suspect]
     Active Substance: DAPAGLIFLOZIN
     Indication: Blood glucose abnormal
     Route: 048
     Dates: start: 20220511, end: 20220513
  2. METOPROLOL SUCCINATE [Suspect]
     Active Substance: METOPROLOL SUCCINATE
     Indication: Heart rate abnormal
     Route: 048
     Dates: start: 20220511, end: 20220513
  3. PERINDOPRIL ERBUMINE [Suspect]
     Active Substance: PERINDOPRIL ERBUMINE
     Indication: Myocardial infarction
     Route: 048
     Dates: start: 20220509, end: 20220513
  4. LIPITOR [Suspect]
     Active Substance: ATORVASTATIN CALCIUM
     Indication: Lipids abnormal
     Route: 048
     Dates: start: 20220509, end: 20220513

REACTIONS (4)
  - Dermatitis allergic [Unknown]
  - Drug eruption [Unknown]
  - Erythema [Recovering/Resolving]
  - Rash pruritic [Recovering/Resolving]

NARRATIVE: CASE EVENT DATE: 20220513
